FAERS Safety Report 15997317 (Version 1)
Quarter: 2019Q1

REPORT INFORMATION
  Report Type: Spontaneous
  Country: US (occurrence: US)
  Receive Date: 20190222
  Receipt Date: 20190222
  Transmission Date: 20190418
  Serious: No
  Sender: FDA-Public Use
  Company Number: US-SA-2019SA043945

PATIENT
  Age: 55 Year
  Sex: Male

DRUGS (5)
  1. AVONEX [Concomitant]
     Active Substance: INTERFERON BETA-1A
     Dosage: 30 UG, QW
     Route: 030
  2. TECFIDERA [Concomitant]
     Active Substance: DIMETHYL FUMARATE
     Dosage: UNK UNK, BID/120MG ORALLY TWICE DAILY FOR 7 DAYS, THEN 240MG ORALLY TWICE DAILY THEREAFTER
     Dates: start: 201901
  3. DALFAMPRIDINE. [Suspect]
     Active Substance: DALFAMPRIDINE
     Dosage: 10 MG, BID
     Route: 048
     Dates: start: 2019
  4. AMPYRA [Concomitant]
     Active Substance: DALFAMPRIDINE
     Dosage: 10 MG
  5. AUBAGIO [Suspect]
     Active Substance: TERIFLUNOMIDE
     Indication: MULTIPLE SCLEROSIS
     Dosage: 14 MG, QD
     Route: 048

REACTIONS (1)
  - Musculoskeletal stiffness [Not Recovered/Not Resolved]
